FAERS Safety Report 21062396 (Version 3)
Quarter: 2022Q3

REPORT INFORMATION
  Report Type: Report from Study
  Country: US (occurrence: US)
  Receive Date: 20220711
  Receipt Date: 20220805
  Transmission Date: 20221026
  Serious: No
  Sender: FDA-Public Use
  Company Number: US-NOVARTISTESTPH-NVSC2022US155856

PATIENT
  Age: 58 Year
  Sex: Female

DRUGS (1)
  1. ENTRESTO [Suspect]
     Active Substance: SACUBITRIL\VALSARTAN
     Indication: Product used for unknown indication
     Dosage: 1 DOSAGE FORM, QD (24/26 MG)
     Route: 048

REACTIONS (7)
  - Dyspnoea [Unknown]
  - Alopecia [Unknown]
  - Arthritis [Unknown]
  - Stress [Unknown]
  - Confusional state [Unknown]
  - Cough [Unknown]
  - Inappropriate schedule of product administration [Unknown]
